FAERS Safety Report 9740033 (Version 1)
Quarter: 2013Q4

REPORT INFORMATION
  Report Type: Spontaneous
  Country: CH (occurrence: CH)
  Receive Date: 20131209
  Receipt Date: 20131209
  Transmission Date: 20140711
  Serious: Yes (Hospitalization)
  Sender: FDA-Public Use
  Company Number: CH-TEVA-447499ISR

PATIENT
  Age: 84 Year
  Sex: Female
  Weight: 64 kg

DRUGS (8)
  1. COTENOLOL-MEPHA NEO MITE [Suspect]
     Dosage: 2 DOSAGE FORMS DAILY; 1 DF = 50 MG ATENOLOL AND 12.5 MG CHLORTALIDONE, THERAPY START DATE UNKNOWN
     Route: 048
     Dates: end: 20131014
  2. DAONIL TABLETTEN [Suspect]
     Dosage: 10 MILLIGRAM DAILY;
     Route: 048
     Dates: start: 20131010, end: 20131014
  3. DAONIL TABLETTEN [Suspect]
     Dosage: INITIAL DOSE UNKNOWN, INCREASED ON 10-OCT-2013
     Route: 048
     Dates: end: 201310
  4. JANUMET [Suspect]
     Dosage: 2 DOSAGE FORMS DAILY; 1 DF = 850 MG METFORMIN AND 50 MG SITAGLIPTIN
     Route: 048
     Dates: start: 20131010
  5. NORMISON [Concomitant]
     Dosage: 20 MILLIGRAM DAILY;
     Route: 048
  6. ASPIRIN CARDIO [Concomitant]
     Dosage: 100 MILLIGRAM DAILY;
     Route: 048
  7. SORTIS [Concomitant]
     Dosage: 20 MILLIGRAM DAILY;
     Route: 048
  8. CORVATON 4 MG [Concomitant]
     Dosage: 2 MILLIGRAM DAILY;
     Route: 048

REACTIONS (4)
  - Hyponatraemia [Recovering/Resolving]
  - Confusional state [Recovered/Resolved]
  - Hepatic enzyme increased [Recovering/Resolving]
  - Headache [Unknown]
